FAERS Safety Report 17241375 (Version 1)
Quarter: 2019Q4

REPORT INFORMATION
  Report Type: Spontaneous
  Country: US (occurrence: US)
  Receive Date: 20191211
  Receipt Date: 20191211
  Transmission Date: 20200122
  Serious: Yes (Hospitalization)
  Sender: FDA-Public Use
  Company Number: None

PATIENT
  Age: 72 Year
  Sex: Male

DRUGS (1)
  1. IOHEXOL [Suspect]
     Active Substance: IOHEXOL
     Indication: ANGIOGRAM
     Route: 042
     Dates: start: 20191021, end: 20191021

REACTIONS (6)
  - Chronic kidney disease [None]
  - Acute kidney injury [None]
  - Shock [None]
  - Hypertension [None]
  - Renal tubular necrosis [None]
  - Contrast media reaction [None]

NARRATIVE: CASE EVENT DATE: 20191022
